FAERS Safety Report 5911231-3 (Version None)
Quarter: 2008Q4

REPORT INFORMATION
  Report Type: 
  Country: None (occurrence: None)
  Receive Date: 20081007
  Receipt Date: 20081003
  Transmission Date: 20090506
  Serious: Yes (Death)
  Sender: FDA-Public Use
  Company Number: GR-ABBOTT-08P-066-0479836-00

PATIENT
  Age: 61 Year
  Sex: Male
  Weight: 78 kg

DRUGS (7)
  1. ZEMPLAR [Suspect]
     Indication: HYPERPARATHYROIDISM SECONDARY
     Route: 042
     Dates: start: 20070525, end: 20080718
  2. FORSENOL [Concomitant]
     Indication: BLOOD PHOSPHORUS INCREASED
     Route: 048
  3. EPOETIN ALFA [Concomitant]
     Indication: ANAEMIA
     Dosage: 1X3
     Route: 042
  4. LEVOCARNITINE [Concomitant]
     Indication: RENAL FAILURE CHRONIC
     Route: 042
  5. CERNEVIT-12 [Concomitant]
     Indication: RENAL FAILURE CHRONIC
     Route: 042
  6. FOLIC ACID [Concomitant]
     Indication: ANAEMIA
     Route: 048
     Dates: start: 20061001
  7. CLOPIDOGREL BISULFATE [Concomitant]
     Indication: ANTICOAGULANT THERAPY
     Route: 048
     Dates: start: 20061001

REACTIONS (1)
  - CARDIAC ARREST [None]
